FAERS Safety Report 16560585 (Version 1)
Quarter: 2019Q3

REPORT INFORMATION
  Report Type: Spontaneous
  Country: US (occurrence: US)
  Receive Date: 20190711
  Receipt Date: 20190711
  Transmission Date: 20191004
  Serious: No
  Sender: FDA-Public Use
  Company Number: US-PFIZER INC-2019290139

PATIENT

DRUGS (1)
  1. BESPONSA [Suspect]
     Active Substance: INOTUZUMAB OZOGAMICIN
     Indication: B-CELL TYPE ACUTE LEUKAEMIA
     Dosage: UNK UNK, CYCLIC

REACTIONS (1)
  - Neoplasm progression [Unknown]
